FAERS Safety Report 23568938 (Version 1)
Quarter: 2024Q1

REPORT INFORMATION
  Report Type: Report from Study
  Country: US (occurrence: US)
  Receive Date: 20240227
  Receipt Date: 20240227
  Transmission Date: 20240409
  Serious: No
  Sender: FDA-Public Use
  Company Number: US-ORG100014127-2023000998

PATIENT
  Age: 56 Year
  Sex: Female

DRUGS (14)
  1. METYRAPONE [Suspect]
     Active Substance: METYRAPONE
     Indication: Pituitary-dependent Cushing^s syndrome
     Dosage: 2 CAPSULES (500 MG) BY MOUTH THREE TIMES DAILY
     Route: 048
     Dates: start: 20211002
  2. AMLODIPINE BESYLATE [Concomitant]
     Active Substance: AMLODIPINE BESYLATE
     Indication: Product used for unknown indication
  3. BIOTIN TAB 1000MCG [Concomitant]
     Indication: Product used for unknown indication
  4. CABERGOLINE TAB 0.5MG [Concomitant]
     Indication: Product used for unknown indication
  5. DULOXETINE CAP 30MG [Concomitant]
     Indication: Product used for unknown indication
  6. ELIQUIS [Concomitant]
     Active Substance: APIXABAN
     Indication: Product used for unknown indication
  7. HYDROCHLOROT TAB 25MG [Concomitant]
     Indication: Product used for unknown indication
  8. LOSARTAN POT TAB 50MG [Concomitant]
     Indication: Product used for unknown indication
  9. NEUPRO DIS 8MG/24HR [Concomitant]
     Indication: Product used for unknown indication
  10. PANTOPRAZOLE TAB 40MG [Concomitant]
     Indication: Product used for unknown indication
  11. SPIRONOLACT TAB 25MG [Concomitant]
     Indication: Product used for unknown indication
  12. TRAMADOL HCL TAB 50MG [Concomitant]
     Indication: Product used for unknown indication
  13. VITAMIN D3 [Concomitant]
     Active Substance: CHOLECALCIFEROL
     Indication: Product used for unknown indication
  14. POT CL MICRO TAB 20MEQ ER [Concomitant]
     Indication: Product used for unknown indication

REACTIONS (1)
  - Off label use [Unknown]

NARRATIVE: CASE EVENT DATE: 20211002
